FAERS Safety Report 8257216-6 (Version None)
Quarter: 2012Q2

REPORT INFORMATION
  Report Type: 
  Country: None (occurrence: None)
  Receive Date: 20120403
  Receipt Date: 20120323
  Transmission Date: 20120825
  Serious: Yes (Other)
  Sender: FDA-Public Use
  Company Number: FR-BRISTOL-MYERS SQUIBB COMPANY-16409435

PATIENT
  Age: 57 Year
  Sex: Male

DRUGS (1)
  1. VIDEX EC [Suspect]
     Indication: HIV INFECTION
     Dosage: CAPSULE
     Route: 048
     Dates: start: 19960101

REACTIONS (2)
  - MALIGNANT MELANOMA [None]
  - BASAL CELL CARCINOMA [None]
